FAERS Safety Report 8081412-4 (Version None)
Quarter: 2012Q1

REPORT INFORMATION
  Report Type: 
  Country: None (occurrence: None)
  Receive Date: 20120130
  Receipt Date: 20120127
  Transmission Date: 20120608
  Serious: Yes (Hospitalization)
  Sender: FDA-Public Use
  Company Number: IT-GILEAD-2011-0042726

PATIENT
  Sex: Female

DRUGS (3)
  1. NORVIR [Concomitant]
     Indication: HIV INFECTION
     Route: 064
     Dates: start: 20071221, end: 20110720
  2. REYATAZ [Suspect]
     Indication: HIV INFECTION
     Dosage: 300 MG, QD
     Route: 064
     Dates: start: 20071221, end: 20110720
  3. TRUVADA [Suspect]
     Indication: HIV INFECTION
     Dosage: 300 MG, UNK
     Route: 064
     Dates: start: 20071221, end: 20110701

REACTIONS (2)
  - MATERNAL DRUGS AFFECTING FOETUS [None]
  - HYDROPS FOETALIS [None]
